FAERS Safety Report 9867687 (Version 1)
Quarter: 2014Q1

REPORT INFORMATION
  Report Type: Spontaneous
  Country: US (occurrence: US)
  Receive Date: 20140204
  Receipt Date: 20140204
  Transmission Date: 20141002
  Serious: No
  Sender: FDA-Public Use
  Company Number: US-009507513-1402USA000485

PATIENT
  Sex: Male

DRUGS (1)
  1. TEMODAR [Suspect]
     Indication: NEOPLASM MALIGNANT
     Dosage: TWO 180MG CAPSULES NIGHT
     Route: 048

REACTIONS (3)
  - Vomiting [Recovering/Resolving]
  - Nausea [Recovering/Resolving]
  - Incorrect product storage [Unknown]
